FAERS Safety Report 4411391-X (Version None)
Quarter: 2004Q3

REPORT INFORMATION
  Report Type: 
  Country: None (occurrence: None)
  Receive Date: 20040727
  Receipt Date: 20040720
  Transmission Date: 20050211
  Serious: Yes (Life-Threatening)
  Sender: FDA-Public Use
  Company Number: 2004AP02110

PATIENT
  Age: 94 Year
  Sex: Female

DRUGS (7)
  1. SEROQUEL [Suspect]
     Indication: ANXIETY
     Dosage: 25 MG DAILY PO
     Route: 048
  2. NORVASC [Concomitant]
  3. SERENACE [Concomitant]
  4. ASTRIX [Concomitant]
  5. COLOXYL WITH SENNA [Concomitant]
  6. ACETAMINOPHEN W/ CODEINE [Concomitant]
  7. ACETAMINOPHEN [Concomitant]

REACTIONS (1)
  - LOSS OF CONSCIOUSNESS [None]
